FAERS Safety Report 7490338-6 (Version None)
Quarter: 2011Q2

REPORT INFORMATION
  Report Type: 
  Country: None (occurrence: None)
  Receive Date: 20110517
  Receipt Date: 20110517
  Transmission Date: 20111010
  Serious: Yes (Hospitalization)
  Sender: FDA-Public Use
  Company Number: None

PATIENT
  Age: 56 Year
  Sex: Male
  Weight: 99 kg

DRUGS (1)
  1. AZATHIOPRINE [Suspect]
     Indication: WEGENER'S GRANULOMATOSIS
     Dosage: 125 MG EVERY DAY PO
     Route: 048
     Dates: start: 20101214, end: 20110124

REACTIONS (3)
  - VOMITING [None]
  - NAUSEA [None]
  - PANCREATITIS [None]
